FAERS Safety Report 9991138 (Version 1)
Quarter: 2014Q1

REPORT INFORMATION
  Report Type: Report from Study
  Country: US (occurrence: US)
  Receive Date: 20140310
  Receipt Date: 20140310
  Transmission Date: 20141002
  Serious: No
  Sender: FDA-Public Use
  Company Number: US-ABBVIE-13P-163-1133921-00

PATIENT
  Age: 36 Year
  Sex: Female

DRUGS (4)
  1. HUMIRA [Suspect]
     Indication: RHEUMATOID ARTHRITIS
     Dates: start: 20130811
  2. SYNTHROID [Concomitant]
     Indication: HYPOTHYROIDISM
  3. SULINDAC [Concomitant]
     Indication: INFLAMMATION
  4. PRED FORTE [Concomitant]
     Indication: EYE INFLAMMATION

REACTIONS (1)
  - Injection site pain [Recovered/Resolved]
